FAERS Safety Report 11805195 (Version 1)
Quarter: 2015Q4

REPORT INFORMATION
  Report Type: Spontaneous
  Country: IT (occurrence: IT)
  Receive Date: 20151206
  Receipt Date: 20151206
  Transmission Date: 20160305
  Serious: Yes (Hospitalization)
  Sender: FDA-Public Use
  Company Number: IT-MYLANLABS-2015M1043019

PATIENT

DRUGS (7)
  1. MESNA. [Suspect]
     Active Substance: MESNA
     Dosage: 2000 MG/M2 ON DAY 1 OF SECOND LINE CHEMOTHERAPY
     Route: 065
  2. DOXORUBICIN [Suspect]
     Active Substance: DOXORUBICIN
     Indication: EWING^S SARCOMA
     Dosage: 25MG/M2 ON DAYS 1-3
     Route: 065
  3. ETOPOSIDE. [Suspect]
     Active Substance: ETOPOSIDE
     Indication: EWING^S SARCOMA
     Dosage: 150MG/M2 ON DAY 1-3 OF SECOND LINE CHEMOTHERAPY
     Route: 065
  4. CYCLOPHOSPHAMIDE. [Suspect]
     Active Substance: CYCLOPHOSPHAMIDE
     Indication: EWING^S SARCOMA
     Dosage: 1200MG/M2 ON DAY 1 OF SECOND LINE CHEMOTHERAPY
     Route: 065
  5. MESNA. [Suspect]
     Active Substance: MESNA
     Indication: EWING^S SARCOMA
     Dosage: 3000MG/M2 ON DAYS 1-3
     Route: 065
  6. VINCRISTINE [Suspect]
     Active Substance: VINCRISTINE
     Indication: EWING^S SARCOMA
     Dosage: 2MG ON DAY 1
     Route: 065
  7. IFOSFAMIDE. [Suspect]
     Active Substance: IFOSFAMIDE
     Indication: EWING^S SARCOMA
     Dosage: 3000MG/M2 ON DAYS 1-3
     Route: 065

REACTIONS (1)
  - Febrile neutropenia [Unknown]
